FAERS Safety Report 9313328 (Version 1)
Quarter: 2013Q2

REPORT INFORMATION
  Report Type: Report from Study
  Country: US (occurrence: US)
  Receive Date: 20130528
  Receipt Date: 20130528
  Transmission Date: 20140414
  Serious: No
  Sender: FDA-Public Use
  Company Number: US-ABBOTT-13P-163-1051804-00

PATIENT
  Age: 43 Year
  Sex: Male
  Weight: 70.37 kg

DRUGS (1)
  1. ANDROGEL 1.62% [Suspect]
     Indication: BLOOD TESTOSTERONE DECREASED
     Dosage: 2 PUMPS, TWICE DAILY
     Route: 061
     Dates: start: 201205

REACTIONS (2)
  - Blood testosterone free decreased [Not Recovered/Not Resolved]
  - Malaise [Not Recovered/Not Resolved]
